FAERS Safety Report 10073877 (Version 2)
Quarter: 2014Q2

REPORT INFORMATION
  Report Type: Spontaneous
  Country: US (occurrence: US)
  Receive Date: 20140411
  Receipt Date: 20140411
  Transmission Date: 20141212
  Serious: Yes (Hospitalization)
  Sender: FDA-Public Use
  Company Number: US-B.I. PHARMACEUTICALS,INC./RIDGEFIELD-2013-BI-19636BP

PATIENT
  Age: 60 Year
  Sex: Male
  Weight: 94.35 kg

DRUGS (9)
  1. POTASSIUM [Concomitant]
     Route: 065
  2. COREG [Concomitant]
     Route: 065
  3. LISINOPRIL [Concomitant]
     Route: 065
  4. SIMVASTATIN [Concomitant]
     Route: 065
  5. DARVOCET-N 100 [Concomitant]
     Route: 065
  6. VICODIN ES [Concomitant]
     Route: 065
  7. PRADAXA [Suspect]
     Indication: ATRIAL FIBRILLATION
     Route: 065
     Dates: start: 20110817, end: 20110907
  8. LANOXIN [Concomitant]
     Route: 065
  9. LASIX [Concomitant]
     Route: 065

REACTIONS (2)
  - Gastrointestinal haemorrhage [Unknown]
  - Coagulopathy [Unknown]
